FAERS Safety Report 16202825 (Version 1)
Quarter: 2019Q2

REPORT INFORMATION
  Report Type: Other
  Country: NL (occurrence: NL)
  Receive Date: 20190416
  Receipt Date: 20190416
  Transmission Date: 20190711
  Serious: Yes (Hospitalization)
  Sender: FDA-Public Use
  Company Number: NL-APOTEX-2019AP011657

PATIENT
  Age: 47 Year
  Sex: Female
  Weight: 64 kg

DRUGS (1)
  1. DILTIAZEM HCL APOTEX TABLETTEN [Suspect]
     Active Substance: DILTIAZEM HYDROCHLORIDE
     Indication: HEART VALVE INCOMPETENCE
     Dosage: UNK
     Route: 065
     Dates: start: 20190212, end: 201902

REACTIONS (12)
  - Dyspnoea [Unknown]
  - Lip swelling [Recovering/Resolving]
  - Feeling cold [Recovering/Resolving]
  - Swollen tongue [Recovering/Resolving]
  - Paraesthesia [Unknown]
  - Memory impairment [Recovering/Resolving]
  - Swelling face [Recovering/Resolving]
  - Dry throat [Recovering/Resolving]
  - Dizziness [Unknown]
  - Lip blister [Recovering/Resolving]
  - Therapeutic response unexpected [Unknown]
  - Pallor [Unknown]

NARRATIVE: CASE EVENT DATE: 20190301
